FAERS Safety Report 9085393 (Version 1)
Quarter: 2013Q1

REPORT INFORMATION
  Report Type: Report from Study
  Country: US (occurrence: US)
  Receive Date: 20130131
  Receipt Date: 20130131
  Transmission Date: 20140127
  Serious: No
  Sender: FDA-Public Use
  Company Number: US-ABBOTT-12P-163-1001582-00

PATIENT
  Age: 55 Year
  Sex: Female

DRUGS (3)
  1. HUMIRA [Suspect]
     Indication: RHEUMATOID ARTHRITIS
     Route: 058
     Dates: start: 2005
  2. METHOTREXATE [Concomitant]
     Indication: PRODUCT USED FOR UNKNOWN INDICATION
     Dosage: WEEKLY
  3. FOLIC ACID [Concomitant]
     Indication: PRODUCT USED FOR UNKNOWN INDICATION

REACTIONS (12)
  - Dizziness [Recovering/Resolving]
  - Labyrinthitis [Recovering/Resolving]
  - Drug dose omission [Unknown]
  - Inappropriate schedule of drug administration [Unknown]
  - Rheumatoid arthritis [Unknown]
  - Pain [Unknown]
  - Injection site pain [Unknown]
  - Incorrect dose administered [Unknown]
  - Rheumatoid arthritis [Unknown]
  - Incorrect dose administered [Unknown]
  - Injection site pain [Unknown]
  - Incorrect dose administered [Unknown]
